FAERS Safety Report 8943443 (Version 1)
Quarter: 2012Q4

REPORT INFORMATION
  Report Type: 
  Country: GB (occurrence: GB)
  Receive Date: 20121204
  Receipt Date: 20121204
  Transmission Date: 20130627
  Serious: Yes (Life-Threatening)
  Sender: FDA-Public Use
  Company Number: PHHY2012GB110593

PATIENT
  Age: 68 Year
  Sex: Female

DRUGS (5)
  1. ANASTROZOLE [Suspect]
     Indication: ADJUVANT THERAPY
     Dosage: 1 mg QD
     Route: 048
     Dates: start: 20091230
  2. ALENDRONIC ACID [Concomitant]
  3. CITALOPRAM [Concomitant]
  4. ADCAL [Concomitant]
  5. AMOXICILLIN [Concomitant]

REACTIONS (1)
  - Pulmonary embolism [Recovered/Resolved]
